FAERS Safety Report 14568397 (Version 1)
Quarter: 2018Q1

REPORT INFORMATION
  Report Type: Spontaneous
  Country: RU (occurrence: RU)
  Receive Date: 20180223
  Receipt Date: 20180223
  Transmission Date: 20180509
  Serious: Yes (Other)
  Sender: FDA-Public Use
  Company Number: RU-TEVA-2018-RU-862291

PATIENT
  Age: 73 Year
  Sex: Female
  Weight: 75 kg

DRUGS (3)
  1. ROSART (ROSUVASTATIN CALCIUM) [Suspect]
     Active Substance: ROSUVASTATIN CALCIUM
     Indication: CEREBRAL ARTERIOSCLEROSIS
  2. ROSART (ROSUVASTATIN CALCIUM) [Suspect]
     Active Substance: ROSUVASTATIN CALCIUM
     Indication: CEREBRAL ARTERY OCCLUSION
     Dosage: 20 MILLIGRAM DAILY;
     Route: 048
     Dates: start: 20161111, end: 20170927
  3. TRENTAL [Concomitant]
     Active Substance: PENTOXIFYLLINE
     Indication: POLYNEUROPATHY
     Route: 048
     Dates: start: 20170802, end: 20170902

REACTIONS (1)
  - Muscular weakness [Recovering/Resolving]

NARRATIVE: CASE EVENT DATE: 20170901
